FAERS Safety Report 4479320-0 (Version None)
Quarter: 2004Q4

REPORT INFORMATION
  Report Type: 
  Country: None (occurrence: None)
  Receive Date: 20041020
  Receipt Date: 20041012
  Transmission Date: 20050328
  Serious: Yes (Hospitalization)
  Sender: FDA-Public Use
  Company Number: IE-ABBOTT-04P-229-0277077-00

PATIENT
  Sex: Female

DRUGS (2)
  1. KLACID LA [Suspect]
     Indication: BRONCHITIS
     Dates: start: 20030820
  2. AUGMENTIN '125' [Suspect]
     Indication: BRONCHITIS
     Dates: start: 20030929

REACTIONS (1)
  - JAUNDICE [None]
